FAERS Safety Report 9504258 (Version 1)
Quarter: 2013Q3

REPORT INFORMATION
  Report Type: Spontaneous
  Country: JP (occurrence: JP)
  Receive Date: 20130906
  Receipt Date: 20130906
  Transmission Date: 20140515
  Serious: Yes (Other)
  Sender: FDA-Public Use
  Company Number: JP-GLAXOSMITHKLINE-B0920677A

PATIENT
  Sex: Female

DRUGS (1)
  1. SERETIDE [Suspect]
     Indication: ASTHMA
     Route: 055

REACTIONS (1)
  - Candida infection [Unknown]
